FAERS Safety Report 17292589 (Version 1)
Quarter: 2020Q1

REPORT INFORMATION
  Report Type: Spontaneous
  Country: RU (occurrence: RU)
  Receive Date: 20200121
  Receipt Date: 20200121
  Transmission Date: 20200409
  Serious: Yes (Other)
  Sender: FDA-Public Use
  Company Number: RU-BAYER-2020-001529

PATIENT
  Age: 77 Year
  Sex: Female

DRUGS (1)
  1. ULTRAVIST [Suspect]
     Active Substance: IOPROMIDE
     Dosage: UNK, ONCE

REACTIONS (7)
  - Erythema [Recovering/Resolving]
  - Suspected product quality issue [None]
  - Pyrexia [Recovering/Resolving]
  - Skin discolouration [Recovering/Resolving]
  - Loss of consciousness [Recovering/Resolving]
  - Anaphylactoid reaction [Recovering/Resolving]
  - Wheezing [Recovering/Resolving]
